FAERS Safety Report 9640808 (Version 1)
Quarter: 2013Q4

REPORT INFORMATION
  Report Type: Spontaneous
  Country: US (occurrence: US)
  Receive Date: 20131023
  Receipt Date: 20131023
  Transmission Date: 20140711
  Serious: No
  Sender: FDA-Public Use
  Company Number: US-009507513-1310USA000868

PATIENT
  Age: 20 Year
  Sex: Female
  Weight: 64 kg

DRUGS (2)
  1. IMPLANON [Suspect]
     Indication: CONTRACEPTION
     Dosage: UNK
     Route: 059
     Dates: start: 201208
  2. BIRTH CONTROL PILLS [Concomitant]
     Indication: MENORRHAGIA
     Dosage: UNK
     Route: 048

REACTIONS (3)
  - Weight increased [Unknown]
  - Headache [Unknown]
  - Menorrhagia [Unknown]
